FAERS Safety Report 17553988 (Version 1)
Quarter: 2020Q1

REPORT INFORMATION
  Report Type: Spontaneous
  Country: GB (occurrence: GB)
  Receive Date: 20200317
  Receipt Date: 20200317
  Transmission Date: 20200409
  Serious: Yes (Other)
  Sender: FDA-Public Use
  Company Number: GB-CELLTRION INC.-2020GB020459

PATIENT

DRUGS (3)
  1. INFLIXIMAB (UNKNOWN) [Suspect]
     Active Substance: INFLIXIMAB
     Indication: DRUG-INDUCED LIVER INJURY
     Dosage: 5 MG/KG EVERY 2 WEEKS, 2 CYCLES
     Route: 065
  2. METHYLPREDNISOLONE. [Concomitant]
     Active Substance: METHYLPREDNISOLONE
     Indication: DRUG-INDUCED LIVER INJURY
     Dosage: 200 MG, DAILY
     Route: 042
  3. PREDNISOLONE. [Concomitant]
     Active Substance: PREDNISOLONE
     Indication: DRUG-INDUCED LIVER INJURY
     Dosage: 60 MG, DAILY
     Route: 065

REACTIONS (3)
  - Hepatic fibrosis [Unknown]
  - Hepatic mass [Unknown]
  - Off label use [Unknown]
